FAERS Safety Report 24316197 (Version 1)
Quarter: 2024Q3

REPORT INFORMATION
  Report Type: Spontaneous
  Country: AU (occurrence: AU)
  Receive Date: 20240913
  Receipt Date: 20240913
  Transmission Date: 20241017
  Serious: Yes (Other)
  Sender: RANBAXY
  Company Number: AU-SUN PHARMACEUTICAL INDUSTRIES LTD-2024R1-465972

PATIENT
  Age: 74 Year
  Sex: Male
  Weight: 74 kg

DRUGS (21)
  1. DOXORUBICIN [Suspect]
     Active Substance: DOXORUBICIN
     Indication: Diffuse large B-cell lymphoma
     Dosage: 95 MILLIGRAM
     Route: 042
     Dates: start: 20240420
  2. PREDNISONE [Suspect]
     Active Substance: PREDNISONE
     Indication: Diffuse large B-cell lymphoma
     Dosage: 100 MILLIGRAM
     Route: 048
     Dates: start: 20240419
  3. CYCLOPHOSPHAMIDE [Suspect]
     Active Substance: CYCLOPHOSPHAMIDE
     Indication: Diffuse large B-cell lymphoma
     Dosage: 1420 MILLIGRAM
     Route: 042
     Dates: start: 20240420
  4. POLATUZUMAB VEDOTIN [Suspect]
     Active Substance: POLATUZUMAB VEDOTIN
     Indication: Product used for unknown indication
     Dosage: UNK
     Route: 042
  5. RITUXIMAB [Suspect]
     Active Substance: RITUXIMAB
     Indication: Diffuse large B-cell lymphoma
     Dosage: 710 MILLIGRAM
     Route: 042
     Dates: start: 20240419
  6. RITUXIMAB [Suspect]
     Active Substance: RITUXIMAB
     Dosage: UNK
     Route: 042
  7. METAMUCIL [Concomitant]
     Active Substance: PLANTAGO SEED
     Indication: Product used for unknown indication
     Dosage: UNK
     Route: 048
     Dates: start: 20240502, end: 20240502
  8. METAMUCIL [Concomitant]
     Active Substance: PLANTAGO SEED
     Indication: Product used for unknown indication
     Dosage: UNK
     Route: 048
     Dates: start: 20240423, end: 20240423
  9. ALLOPURINOL [Concomitant]
     Active Substance: ALLOPURINOL
     Indication: Product used for unknown indication
     Dosage: 300 MILLIGRAM
     Route: 048
     Dates: start: 20240420, end: 20240503
  10. ASPIRIN [Concomitant]
     Active Substance: ASPIRIN
     Indication: Myocardial ischaemia
     Dosage: 100 MILLIGRAM
     Route: 048
     Dates: start: 2014
  11. ATORVASTATIN [Concomitant]
     Active Substance: ATORVASTATIN
     Indication: Hypercholesterolaemia
     Dosage: 40 MILLIGRAM
     Route: 048
     Dates: start: 2014
  12. CALCIUM CARBONATE [Concomitant]
     Active Substance: CALCIUM CARBONATE
     Indication: Product used for unknown indication
     Dosage: 1.2 GRAM
     Route: 048
     Dates: start: 20240422, end: 20240426
  13. FUROSEMIDE [Concomitant]
     Active Substance: FUROSEMIDE
     Indication: Product used for unknown indication
     Dosage: 2 MILLIGRAM
     Route: 065
     Dates: start: 20240421, end: 20240421
  14. HYDROCORTISONE [Concomitant]
     Active Substance: HYDROCORTISONE\HYDROCORTISONE ACETATE
     Indication: Adverse drug reaction
     Dosage: 100 MILLIGRAM
     Route: 042
     Dates: start: 20240419, end: 20240419
  15. LACTULOSE [Concomitant]
     Active Substance: LACTULOSE
     Indication: Product used for unknown indication
     Dosage: 20 MILLILITER
     Route: 048
     Dates: start: 20240506, end: 20240506
  16. LORATADINE [Concomitant]
     Active Substance: LORATADINE
     Indication: Product used for unknown indication
     Dosage: 10 MILLIGRAM
     Route: 048
     Dates: start: 20240419, end: 20240419
  17. OXYCODONE [Concomitant]
     Active Substance: OXYCODONE
     Indication: Product used for unknown indication
     Dosage: 5 MILLIGRAM
     Route: 048
     Dates: start: 20240428, end: 20240503
  18. ACETAMINOPHEN [Concomitant]
     Active Substance: ACETAMINOPHEN
     Indication: Product used for unknown indication
     Dosage: 1 GRAM
     Route: 048
     Dates: start: 20240417
  19. POTASSIUM CHLORIDE [Concomitant]
     Active Substance: POTASSIUM CHLORIDE
     Indication: Product used for unknown indication
     Dosage: UNK
     Route: 048
     Dates: start: 20240417, end: 20240426
  20. PREDNISOLONE [Concomitant]
     Active Substance: PREDNISOLONE
     Indication: Product used for unknown indication
     Dosage: 75 MILLIGRAM
     Route: 048
     Dates: start: 20240417, end: 20240418
  21. TEMAZEPAM [Concomitant]
     Active Substance: TEMAZEPAM
     Indication: Product used for unknown indication
     Dosage: 10 MILLIGRAM
     Route: 048
     Dates: start: 20240418, end: 20240418

REACTIONS (1)
  - Neutropenic colitis [Recovered/Resolved]

NARRATIVE: CASE EVENT DATE: 20240429
